FAERS Safety Report 25661674 (Version 2)
Quarter: 2025Q3

REPORT INFORMATION
  Report Type: Report from Study
  Country: US (occurrence: US)
  Receive Date: 20250808
  Receipt Date: 20250815
  Transmission Date: 20251021
  Serious: No
  Sender: MERCK SHARP & DOHME LLC
  Company Number: US-009507513-2309645

PATIENT
  Sex: Female
  Weight: 70.3 kg

DRUGS (15)
  1. SOTATERCEPT [Suspect]
     Active Substance: SOTATERCEPT
     Indication: Product used for unknown indication
  2. TYVASO DPI [Concomitant]
     Active Substance: TREPROSTINIL
     Indication: Pulmonary arterial hypertension
     Dosage: 16 ?G AND 48 ?G AND THE CURRENT DOSE WAS REPORTED AS 64 ?G (16 ?G+ 48 ?G), FOUR ?TIMES A DAY (QID...
     Route: 055
     Dates: start: 20230427
  3. TREPROSTINIL [Concomitant]
     Active Substance: TREPROSTINIL
     Indication: Pulmonary arterial hypertension
  4. VITAMINS [Concomitant]
     Active Substance: VITAMINS
  5. TYLENOL [Concomitant]
     Active Substance: ACETAMINOPHEN
  6. POTASSIUM CHLORIDE [Concomitant]
     Active Substance: POTASSIUM CHLORIDE
  7. TORSEMIDE [Concomitant]
     Active Substance: TORSEMIDE
  8. VITAMIN D3 [Concomitant]
     Active Substance: CHOLECALCIFEROL
  9. SILDENAFIL CITRATE [Concomitant]
     Active Substance: SILDENAFIL CITRATE
  10. CINNAMON [Concomitant]
     Active Substance: CINNAMON
  11. XANAX [Concomitant]
     Active Substance: ALPRAZOLAM
  12. ASPIRIN [Concomitant]
     Active Substance: ASPIRIN
  13. OXYGEN [Concomitant]
     Active Substance: OXYGEN
  14. LETAIRIS [Concomitant]
     Active Substance: AMBRISENTAN
  15. TRAZODONE HCL [Concomitant]
     Active Substance: TRAZODONE HYDROCHLORIDE

REACTIONS (2)
  - Feeling abnormal [Unknown]
  - Rhinovirus infection [Not Recovered/Not Resolved]
